FAERS Safety Report 14003022 (Version 2)
Quarter: 2017Q3

REPORT INFORMATION
  Report Type: Spontaneous
  Country: DE (occurrence: IS)
  Receive Date: 20170922
  Receipt Date: 20170925
  Transmission Date: 20171128
  Serious: Yes (Death)
  Sender: FDA-Public Use
  Company Number: DE-ROCHE-1996616

PATIENT
  Age: 46 Year
  Sex: Male

DRUGS (2)
  1. DIAZEPAM. [Suspect]
     Active Substance: DIAZEPAM
     Indication: PRODUCT USED FOR UNKNOWN INDICATION
     Route: 048
  2. LOBAK (ACETAMINOPHEN\CHLORMEZANONE) [Suspect]
     Active Substance: ACETAMINOPHEN\CHLORMEZANONE
     Indication: PRODUCT USED FOR UNKNOWN INDICATION
     Dosage: 4 G CHLORMEZANONE AND 18 G ACETAMINOPHEN
     Route: 048

REACTIONS (3)
  - Completed suicide [Fatal]
  - Coma [Fatal]
  - Intentional overdose [Fatal]
